FAERS Safety Report 12986812 (Version 2)
Quarter: 2016Q4

REPORT INFORMATION
  Report Type: Spontaneous
  Country: GB (occurrence: GB)
  Receive Date: 20161130
  Receipt Date: 20161212
  Transmission Date: 20170207
  Serious: Yes (Other)
  Sender: FDA-Public Use
  Company Number: GB-TEVA-713894ACC

PATIENT

DRUGS (1)
  1. SALBUTAMOL [Suspect]
     Active Substance: ALBUTEROL
     Route: 065

REACTIONS (6)
  - Gingival bleeding [Unknown]
  - Epistaxis [Unknown]
  - Heart rate increased [Unknown]
  - Disorientation [Unknown]
  - Swelling [Unknown]
  - Pharyngeal oedema [Unknown]
